FAERS Safety Report 9433964 (Version 2)
Quarter: 2013Q3

REPORT INFORMATION
  Report Type: Report from Study
  Country: US (occurrence: US)
  Receive Date: 20130801
  Receipt Date: 20130813
  Transmission Date: 20140515
  Serious: Yes (Other)
  Sender: FDA-Public Use
  Company Number: US-ROCHE-1254589

PATIENT
  Age: 27 Year
  Sex: Female

DRUGS (3)
  1. LUCENTIS [Suspect]
     Indication: RETINAL VEIN OCCLUSION
     Dosage: OS
     Route: 050
  2. TRAVATAN [Concomitant]
     Dosage: OU HS
     Route: 065
     Dates: start: 20130117
  3. WELLBUTRIN [Concomitant]
     Route: 048
     Dates: start: 20121101

REACTIONS (3)
  - Haemorrhage [Unknown]
  - Glaucoma [Unknown]
  - Retinal exudates [Unknown]
